FAERS Safety Report 16254634 (Version 1)
Quarter: 2019Q2

REPORT INFORMATION
  Report Type: Spontaneous
  Country: GB (occurrence: GB)
  Receive Date: 20190430
  Receipt Date: 20190430
  Transmission Date: 20190711
  Serious: Yes (Disabling, Other)
  Sender: FDA-Public Use
  Company Number: GB-ACCORD-124630

PATIENT
  Age: 36 Year
  Sex: Male

DRUGS (3)
  1. CISPLATIN. [Suspect]
     Active Substance: CISPLATIN
     Indication: TESTIS CANCER
     Dosage: DAYS 1-2, 4 CYCLES 3 WEEKS APART
     Route: 042
  2. DEXAMETHASONE. [Suspect]
     Active Substance: DEXAMETHASONE
     Indication: PROPHYLAXIS OF NAUSEA AND VOMITING
     Dosage: DAYS 2-5, 4 CYCLES 3 WEEKS APART, ALSO RECEIVED 8 MG, DAY 1, 4 CYCLES 3 WEEKS APART
     Route: 048
  3. ETOPOSIDE. [Suspect]
     Active Substance: ETOPOSIDE
     Indication: TESTIS CANCER
     Dosage: DAYS 1-3, 4 CYCLES 3 WEEKS APART
     Route: 042

REACTIONS (3)
  - Osteonecrosis [Recovering/Resolving]
  - Gait disturbance [Recovering/Resolving]
  - Groin pain [Unknown]
